FAERS Safety Report 6644578-6 (Version None)
Quarter: 2010Q1

REPORT INFORMATION
  Report Type: 
  Country: None (occurrence: None)
  Receive Date: 20100322
  Receipt Date: 20100319
  Transmission Date: 20100710
  Serious: Yes (Life-Threatening, Hospitalization, Other)
  Sender: FDA-Public Use
  Company Number: MY-ROXANE LABORATORIES, INC.-2010-RO-00305RO

PATIENT
  Age: 44 Year
  Sex: Female

DRUGS (5)
  1. METHADONE HCL [Suspect]
     Indication: DRUG DEPENDENCE
     Dosage: 120 MG
  2. ITRACONAZOLE [Suspect]
     Indication: VULVOVAGINAL CANDIDIASIS
     Route: 048
  3. BUPRENORPHINE [Concomitant]
     Indication: DRUG DEPENDENCE
  4. POTASSIUM [Concomitant]
     Indication: MINERAL SUPPLEMENTATION
  5. MAGNESIUM [Concomitant]
     Indication: MINERAL SUPPLEMENTATION

REACTIONS (6)
  - CHEST DISCOMFORT [None]
  - ELECTROCARDIOGRAM QT PROLONGED [None]
  - LETHARGY [None]
  - SYNCOPE [None]
  - TORSADE DE POINTES [None]
  - VULVOVAGINAL CANDIDIASIS [None]
